FAERS Safety Report 11833529 (Version 1)
Quarter: 2015Q4

REPORT INFORMATION
  Report Type: Spontaneous
  Country: FR (occurrence: FR)
  Receive Date: 20151214
  Receipt Date: 20151214
  Transmission Date: 20160305
  Serious: Yes (Hospitalization, Other)
  Sender: FDA-Public Use
  Company Number: FR-009507513-1512FRA007432

PATIENT
  Age: 87 Year
  Sex: Male

DRUGS (8)
  1. DYNA GLICAZIDE [Suspect]
     Active Substance: GLICLAZIDE
     Indication: DIABETES MELLITUS
     Dosage: UNK
     Route: 065
  2. XELEVIA [Suspect]
     Active Substance: SITAGLIPTIN PHOSPHATE
     Indication: DIABETES MELLITUS
     Dosage: UNK
     Route: 065
  3. METFORMIN [Suspect]
     Active Substance: METFORMIN HYDROCHLORIDE
     Indication: DIABETES MELLITUS
     Dosage: UNK
     Route: 065
  4. KARDEGIC [Concomitant]
     Active Substance: ASPIRIN LYSINE
  5. FINASTERIDE. [Concomitant]
     Active Substance: FINASTERIDE
  6. TAVANIC [Suspect]
     Active Substance: LEVOFLOXACIN
     Indication: ANTIBIOTIC PROPHYLAXIS
     Dosage: UNK
     Route: 048
     Dates: start: 20150607, end: 20150608
  7. APROVEL [Concomitant]
     Active Substance: IRBESARTAN
  8. ACETAMINOPHEN. [Concomitant]
     Active Substance: ACETAMINOPHEN

REACTIONS (15)
  - Eosinophilia [Recovering/Resolving]
  - Epstein-Barr virus infection [None]
  - Human herpesvirus 7 infection [None]
  - Face oedema [Recovering/Resolving]
  - Dermatitis exfoliative [Recovering/Resolving]
  - Infection reactivation [Recovering/Resolving]
  - Contraindication to medical treatment [None]
  - Cytomegalovirus test positive [None]
  - Drug reaction with eosinophilia and systemic symptoms [Recovering/Resolving]
  - Diabetes mellitus inadequate control [None]
  - Pyrexia [Recovering/Resolving]
  - Dizziness [None]
  - Vomiting [None]
  - Renal failure [Unknown]
  - Nausea [None]

NARRATIVE: CASE EVENT DATE: 2015
